FAERS Safety Report 8263743 (Version 3)
Quarter: 2013Q2

REPORT INFORMATION
  Report Type: Spontaneous
  Country: DE (occurrence: DE)
  Receive Date: 20111128
  Receipt Date: 20130624
  Transmission Date: 20140414
  Serious: Yes (Hospitalization, Other)
  Sender: FDA-Public Use
  Company Number: DE-PFIZER INC-049-0073-990003

PATIENT
  Age: 19 Month
  Sex: Male
  Weight: 13 kg

DRUGS (34)
  1. PHENYTOIN [Suspect]
     Dosage: UNK
     Dates: start: 19961114, end: 19961124
  2. ALDACTONE [Suspect]
     Dosage: UNK
     Dates: start: 19961204
  3. DIFLUCAN [Suspect]
     Dosage: UNK
     Dates: start: 19961117, end: 19961125
  4. METHOTREXATE SODIUM [Suspect]
     Dosage: UNK
     Dates: start: 19961127, end: 19961129
  5. CLINDAMYCIN [Suspect]
     Dosage: UNK
     Dates: start: 19961203
  6. NEUPOGEN [Suspect]
     Indication: BONE MARROW TRANSPLANT
     Dosage: UNK
     Route: 042
     Dates: start: 19961125
  7. ACETYLCYSTEINE [Suspect]
     Dosage: UNK
     Dates: start: 19961130
  8. AMBISOME [Suspect]
     Dosage: 40MG DAILY
     Dates: start: 19961124
  9. NOREPINEPHRINE [Suspect]
     Dosage: UNK
     Dates: start: 19961210
  10. BACTRIM [Suspect]
     Dosage: UNK
     Dates: start: 19961129
  11. DOPAMINE [Suspect]
     Dosage: UNK
     Dates: start: 19961210
  12. DORMICUM [Suspect]
     Dosage: UNK
     Dates: start: 19961209
  13. ETOPOSIDE [Suspect]
     Dosage: UNK
     Dates: start: 19961122, end: 19961122
  14. FENTANYL [Suspect]
     Dosage: UNK
     Dates: start: 19961209
  15. FORTUM [Suspect]
     Dosage: UNK
     Dates: start: 19961122, end: 19961130
  16. GAMMA GLOBULIN [Suspect]
     Dosage: UNK
     Dates: start: 19961127, end: 19961210
  17. ETHACRYNATE SODIUM [Suspect]
     Dosage: UNK
     Dates: start: 19961212
  18. LASIX [Suspect]
     Dosage: UNK
     Dates: start: 19961124
  19. LUMINAL [Suspect]
     Dosage: UNK
     Dates: start: 19961209
  20. EPINEPHRINE HYDROCHLORIDE [Suspect]
     Dosage: UNK
     Dates: start: 19961206, end: 19961206
  21. MORPHINE HYDROCHLORIDE [Suspect]
     Dosage: UNK
     Dates: start: 19961130, end: 19961209
  22. MUCOSOLVAN [Suspect]
     Dosage: UNK
     Dates: start: 19961211
  23. NOVALGIN [Suspect]
     Dosage: UNK
     Dates: start: 19961120, end: 19961126
  24. PANCURONIUM BROMIDE [Suspect]
     Dosage: UNK
     Dates: start: 19961213, end: 19961213
  25. PARACETAMOL [Suspect]
     Dosage: UNK
     Dates: start: 19961120, end: 19961126
  26. ALPROSTADIL [Suspect]
     Dosage: UNK
     Dates: start: 19961201
  27. VITAMINS [Suspect]
     Dosage: UNK
     Dates: start: 19961126
  28. TOBRAMYCIN [Suspect]
     Dosage: UNK
     Dates: start: 19961124
  29. SULFADIAZINE\TRIMETHOPRIM [Suspect]
     Dosage: UNK
     Dates: start: 19961116, end: 19961127
  30. URBASON [Suspect]
     Dosage: UNK
     Dates: start: 19961124
  31. VITINTRA [Suspect]
     Dosage: UNK
     Dates: start: 19961127
  32. ZANTIC [Suspect]
     Dosage: UNK
     Dates: start: 19961210, end: 19961211
  33. ZIENAM [Suspect]
     Dosage: UNK
     Dates: start: 19961201
  34. ZOVIRAX [Suspect]
     Dosage: UNK
     Dates: start: 19961127

REACTIONS (4)
  - Angioedema [Recovering/Resolving]
  - Ascites [Recovering/Resolving]
  - Obstructive airways disorder [Unknown]
  - Stevens-Johnson syndrome [Recovering/Resolving]
